FAERS Safety Report 5268815-8 (Version None)
Quarter: 2007Q1

REPORT INFORMATION
  Report Type: 
  Country: None (occurrence: None)
  Receive Date: 20061213
  Receipt Date: 20051207
  Transmission Date: 20070707
  Serious: No
  Sender: FDA-Public Use
  Company Number: 2005UW18485

PATIENT
  Age: 80 Year
  Sex: Female
  Weight: 58.513 kg

DRUGS (2)
  1. NOLVADEX [Suspect]
     Indication: BREAST CANCER
     Dates: start: 19980101
  2. 18 TO 20 DIFFERENT MEDICATIONS [Concomitant]

REACTIONS (4)
  - BREAST CANCER RECURRENT [None]
  - CEREBROVASCULAR ACCIDENT [None]
  - URTICARIA [None]
  - WEIGHT DECREASED [None]
